FAERS Safety Report 25853695 (Version 2)
Quarter: 2025Q4

REPORT INFORMATION
  Report Type: Spontaneous
  Country: EU (occurrence: EU)
  Receive Date: 20250926
  Receipt Date: 20251014
  Transmission Date: 20260117
  Serious: Yes (Death, Hospitalization, Other)
  Sender: MYLAN
  Company Number: EU-CHEPLA-2025010633

PATIENT
  Age: 7 Decade

DRUGS (14)
  1. MYCOPHENOLATE MOFETIL [Suspect]
     Active Substance: MYCOPHENOLATE MOFETIL
     Indication: Prophylaxis against graft versus host disease
     Dosage: UNK
  2. TACROLIMUS [Suspect]
     Active Substance: TACROLIMUS
     Indication: Prophylaxis against graft versus host disease
     Dosage: UNK
  3. MYCOPHENOLATE MOFETIL [Suspect]
     Active Substance: MYCOPHENOLATE MOFETIL
     Indication: Prophylaxis against graft versus host disease
     Dosage: 2 MILLIGRAM/KILOGRAM, QD (WAS INCREASED TO 2 MG/KG/DAY)
  4. GANCICLOVIR [Suspect]
     Active Substance: GANCICLOVIR
     Indication: Cytomegalovirus infection reactivation
     Dosage: 5 MILLIGRAM/KILOGRAM, BID (DAY +52 TO52 TO 69 TWICE A DAY)
  5. GANCICLOVIR [Suspect]
     Active Substance: GANCICLOVIR
     Dosage: 5 MILLIGRAM/KILOGRAM (261 TO 280)
  6. VALGANCICLOVIR [Suspect]
     Active Substance: VALGANCICLOVIR
     Indication: Cytomegalovirus colitis
     Dosage: 450 MILLIGRAM, BID (165 TO 261;  TWICE A DAY)
  7. FOSCARNET [Suspect]
     Active Substance: FOSCARNET
     Indication: Prophylaxis against graft versus host disease
     Dosage: 90 MILLIGRAM/KILOGRAM, BID (98 TO 157;  TWICE A DAY)
  8. FLUDARABINE [Suspect]
     Active Substance: FLUDARABINE PHOSPHATE
     Indication: Prophylaxis against graft versus host disease
     Dosage: UNK, 6 TO 2 DAYS BEFORE HSCT (DAY -6 TO DAY -2)
  9. BUSULFAN [Suspect]
     Active Substance: BUSULFAN
     Indication: Prophylaxis against graft versus host disease
     Dosage: UNK (DAY 5 TO DAY 3)
  10. THYMOCYTE IMMUNE GLOBULIN NOS [Suspect]
     Active Substance: THYMOCYTE IMMUNE GLOBULIN NOS
     Indication: Prophylaxis against graft versus host disease
     Dosage: UNK (DAY -2 TO DAY -1)
  11. THYMOCYTE IMMUNE GLOBULIN NOS [Suspect]
     Active Substance: THYMOCYTE IMMUNE GLOBULIN NOS
     Indication: Allogenic stem cell transplantation
  12. METHYLPREDNISOLONE [Suspect]
     Active Substance: METHYLPREDNISOLONE
     Indication: Prophylaxis against graft versus host disease
     Dosage: UNK, DAY 43
  13. METHYLPREDNISOLONE [Suspect]
     Active Substance: METHYLPREDNISOLONE
     Indication: Prophylaxis against graft versus host disease
     Dosage: 2 MILLIGRAM/KILOGRAM, QD (INCREASED TO 2 MG/ KG/DAY)
  14. MARIBAVIR [Concomitant]
     Active Substance: MARIBAVIR
     Dosage: 400 MILLIGRAM, BID (69-98 DAY; TWICE A DAY)

REACTIONS (12)
  - Pulmonary tuberculosis [Fatal]
  - Bacterial infection [Unknown]
  - Acute respiratory distress syndrome [Unknown]
  - Fungal infection [Unknown]
  - Bacteraemia [Unknown]
  - Beta haemolytic streptococcal infection [Unknown]
  - Cytomegalovirus infection reactivation [Unknown]
  - Epstein-Barr virus infection [Unknown]
  - Graft versus host disease [Unknown]
  - Viral infection [Unknown]
  - Drug resistance [Unknown]
  - Off label use [Unknown]
